FAERS Safety Report 25365438 (Version 2)
Quarter: 2025Q4

REPORT INFORMATION
  Report Type: Report from Study
  Country: EU (occurrence: EU)
  Receive Date: 20250527
  Receipt Date: 20251003
  Transmission Date: 20260117
  Serious: Yes (Hospitalization, Other)
  Sender: TEVA
  Company Number: None

PATIENT
  Age: 83 Year
  Sex: Female

DRUGS (11)
  1. SERTRALINE [Suspect]
     Active Substance: SERTRALINE HYDROCHLORIDE
     Indication: Product used for unknown indication
     Dosage: 1 TABLET / 24 H - ORAL ROUTE, POOR ADHERENCE, 30 TABLETS
     Route: 048
     Dates: start: 20250117, end: 20250414
  2. PREGABALIN [Suspect]
     Active Substance: PREGABALIN
     Indication: Product used for unknown indication
     Dosage: 1 CAPSULE / 12 H - ORAL
     Route: 048
     Dates: start: 20241218, end: 20250416
  3. TAMSULOSIN HYDROCHLORIDE [Concomitant]
     Active Substance: TAMSULOSIN HYDROCHLORIDE
     Indication: Urinary retention
     Dosage: 1 TABLET / 24 HOURS - ORALLY, 30 MODIFIED-RELEASE TABLETS
     Route: 048
     Dates: start: 20241211
  4. INDAPAMIDE [Suspect]
     Active Substance: INDAPAMIDE
     Indication: Hypertension
     Dosage: 1 TABLET / 24 H - ORAL ROUTE, ACCORDING TO BLOOD PRESSURE, 30 TABLETS MODIFIED RELEASE
     Route: 048
     Dates: start: 20150110, end: 20250414
  5. MIRTAZAPINE [Suspect]
     Active Substance: MIRTAZAPINE
     Indication: Product used for unknown indication
     Dosage: 0.5 TABLET / 24 H - ORAL ROUTE, POOR ADHERENCE, 30 TABLETS
     Route: 048
     Dates: start: 20250220, end: 20250414
  6. Solifenacina [Concomitant]
     Indication: Product used for unknown indication
     Dosage: 1 TABLET / 24 HOURS - ORALLY, 30 TABLETS
     Route: 048
     Dates: start: 20241219
  7. METOCLOPRAMIDE HYDROCHLORIDE [Concomitant]
     Active Substance: METOCLOPRAMIDE HYDROCHLORIDE
     Indication: Product used for unknown indication
     Dosage: 1 TABLET / 8 HOURS - ORALLY, 30 TABLETS
     Route: 048
     Dates: start: 20250407, end: 20250416
  8. DUPHALAC [Concomitant]
     Active Substance: LACTULOSE
     Indication: Product used for unknown indication
     Dosage: 1 ENVELOPE/8H, ORAL SOLUTION IN SAMPLE, 50 STICKS
     Route: 048
     Dates: start: 20250324
  9. BROMAZEPAM [Concomitant]
     Active Substance: BROMAZEPAM
     Indication: Insomnia
     Dosage: 1 CAPSULE / 24 H - ORALLY, IF INSOMNIA, 30 CAPSULES
     Route: 048
     Dates: start: 20240221, end: 20250501
  10. LEVOFLOXACIN [Concomitant]
     Active Substance: LEVOFLOXACIN
     Indication: Urinary tract infection
     Dosage: 1 TABLET / 12 HOURS - ORALLY, 14 TABLETS
     Route: 048
     Dates: start: 20250409, end: 20250416
  11. FAMOTIDINE [Concomitant]
     Active Substance: FAMOTIDINE
     Indication: Product used for unknown indication
     Dosage: 1 TABLET / 24 HOURS - ORALLY, 28 TABLETS
     Route: 048
     Dates: start: 20220618

REACTIONS (2)
  - Hypokalaemia [Recovered/Resolved]
  - Hyponatraemia [Recovered/Resolved]

NARRATIVE: CASE EVENT DATE: 20250414
